FAERS Safety Report 7562332-8 (Version None)
Quarter: 2011Q2

REPORT INFORMATION
  Report Type: 
  Country: None (occurrence: None)
  Receive Date: 20110622
  Receipt Date: 20110610
  Transmission Date: 20111010
  Serious: Yes (Other)
  Sender: FDA-Public Use
  Company Number: US-JNJFOC-20110608693

PATIENT
  Sex: Female
  Weight: 104.33 kg

DRUGS (15)
  1. STELARA [Suspect]
     Indication: PSORIASIS
     Route: 058
     Dates: start: 20110527
  2. CENTRUM SILVER [Concomitant]
  3. DIGOXIN [Concomitant]
  4. ALLOPURINOL [Concomitant]
  5. CLARITIN [Concomitant]
  6. LOSARTAN POTASSIUM [Concomitant]
  7. GLIMEPIRIDE [Concomitant]
  8. FUROSEMIDE [Concomitant]
  9. PERCOCET [Suspect]
     Indication: PAIN
  10. THEO-24 [Concomitant]
  11. CARTIA XT [Concomitant]
  12. SPIRONOLACTONE [Concomitant]
  13. LEVOTHYROXINE SODIUM [Concomitant]
  14. LIPITOR [Concomitant]
  15. SINGULAIR [Concomitant]

REACTIONS (4)
  - ASTHENIA [None]
  - CONFUSIONAL STATE [None]
  - ARTHRALGIA [None]
  - FALL [None]
